FAERS Safety Report 25135541 (Version 1)
Quarter: 2025Q1

REPORT INFORMATION
  Report Type: Spontaneous
  Country: FR (occurrence: FR)
  Receive Date: 20250328
  Receipt Date: 20250328
  Transmission Date: 20250409
  Serious: No
  Sender: PFIZER
  Company Number: FR-PFIZER INC-202500066030

PATIENT

DRUGS (1)
  1. NIMENRIX [Suspect]
     Active Substance: CLOSTRIDIUM TETANI TOXOID ANTIGEN (FORMALDEHYDE INACTIVATED)\MENINGOCOCCAL POLYSACCHARIDE VACCINE, G

REACTIONS (2)
  - Product preparation error [Unknown]
  - Syringe issue [Unknown]
